FAERS Safety Report 7813916-0 (Version None)
Quarter: 2011Q4

REPORT INFORMATION
  Report Type: 
  Country: None (occurrence: None)
  Receive Date: 20111014
  Receipt Date: 20111007
  Transmission Date: 20120403
  Serious: Yes (Other)
  Sender: FDA-Public Use
  Company Number: NL-PFIZER INC-2011239634

PATIENT
  Age: 64 Year
  Sex: Female

DRUGS (4)
  1. SELOKEEN [Concomitant]
  2. AROMASIN [Suspect]
     Dosage: UNK
     Dates: start: 20110701
  3. TAMOXIFEN [Concomitant]
  4. CLORAZEPATE MONOPOTASSIUM [Concomitant]

REACTIONS (5)
  - PHARYNGEAL OEDEMA [None]
  - SWELLING [None]
  - LIP SWELLING [None]
  - DYSPHAGIA [None]
  - SWOLLEN TONGUE [None]
